FAERS Safety Report 9831314 (Version 2)
Quarter: 2014Q1

REPORT INFORMATION
  Report Type: Spontaneous
  Country: US (occurrence: US)
  Receive Date: 20140121
  Receipt Date: 20140129
  Transmission Date: 20141002
  Serious: No
  Sender: FDA-Public Use
  Company Number: US-BIOGENIDEC-2014BI005621

PATIENT
  Age: 42 Year
  Sex: Female

DRUGS (1)
  1. TYSABRI [Suspect]
     Indication: MULTIPLE SCLEROSIS
     Route: 042
     Dates: start: 20080129

REACTIONS (5)
  - Migraine [Unknown]
  - Optic neuritis [Unknown]
  - Influenza [Recovered/Resolved]
  - Headache [Unknown]
  - Pyrexia [Recovered/Resolved]
